FAERS Safety Report 25002092 (Version 2)
Quarter: 2025Q2

REPORT INFORMATION
  Report Type: Report from Study
  Country: US (occurrence: US)
  Receive Date: 20250224
  Receipt Date: 20250407
  Transmission Date: 20250716
  Serious: No
  Sender: ABBVIE
  Company Number: US-ABBVIE-6143777

PATIENT
  Age: 91 Year
  Sex: Female
  Weight: 57 kg

DRUGS (5)
  1. RINVOQ [Suspect]
     Active Substance: UPADACITINIB
     Indication: Colitis ulcerative
     Dosage: 45MG TABLET BY MOUTH ONCE A DAY X 8 WEEKS, FORM STRENGTH-30 MG
     Route: 048
     Dates: start: 20240820
  2. RINVOQ [Suspect]
     Active Substance: UPADACITINIB
     Indication: Colitis ulcerative
     Dosage: FORM STRENGTH-30 MG
     Route: 048
     Dates: start: 202410
  3. TYLENOL [Concomitant]
     Active Substance: ACETAMINOPHEN
     Indication: Back pain
  4. ASPIRIN [Concomitant]
     Active Substance: ASPIRIN
     Indication: Bone disorder
  5. LISINOPRIL [Concomitant]
     Active Substance: LISINOPRIL
     Indication: Hypertension

REACTIONS (6)
  - Balance disorder [Not Recovered/Not Resolved]
  - Back pain [Not Recovered/Not Resolved]
  - Fall [Unknown]
  - Fatigue [Unknown]
  - Decreased appetite [Unknown]
  - Abdominal pain [Unknown]

NARRATIVE: CASE EVENT DATE: 20250101
